FAERS Safety Report 8307964-4 (Version None)
Quarter: 2012Q2

REPORT INFORMATION
  Report Type: 
  Country: None (occurrence: None)
  Receive Date: 20120424
  Receipt Date: 20120423
  Transmission Date: 20120825
  Serious: Yes (Life-Threatening, Hospitalization)
  Sender: FDA-Public Use
  Company Number: US-GLAXOSMITHKLINE-A0961163A

PATIENT
  Age: 21 Year
  Sex: Female
  Weight: 67.3 kg

DRUGS (3)
  1. LEXAPRO [Concomitant]
  2. ADDERALL 5 [Concomitant]
  3. LAMICTAL [Suspect]
     Indication: EPILEPSY
     Route: 048
     Dates: start: 20110317, end: 20110328

REACTIONS (17)
  - HEADACHE [None]
  - GASTROOESOPHAGEAL REFLUX DISEASE [None]
  - ADVERSE DRUG REACTION [None]
  - RHABDOMYOLYSIS [None]
  - ANAEMIA [None]
  - PEPTIC ULCER [None]
  - PNEUMONIA [None]
  - RASH [None]
  - HEPATITIS [None]
  - RESPIRATORY FAILURE [None]
  - SEPTIC SHOCK [None]
  - DRUG RASH WITH EOSINOPHILIA AND SYSTEMIC SYMPTOMS [None]
  - THROMBOCYTOPENIA [None]
  - SEPSIS SYNDROME [None]
  - COAGULOPATHY [None]
  - EAR PAIN [None]
  - INFLUENZA LIKE ILLNESS [None]
